FAERS Safety Report 9079564 (Version 1)
Quarter: 2013Q1

REPORT INFORMATION
  Report Type: Report from Study
  Country: US (occurrence: US)
  Receive Date: 20130130
  Receipt Date: 20130130
  Transmission Date: 20140127
  Serious: Yes (Other)
  Sender: FDA-Public Use
  Company Number: US-ABBOTT-12P-163-0950620-00

PATIENT
  Age: 53 Year
  Sex: Male

DRUGS (2)
  1. HUMIRA 40 MG/0.8 ML PEN [Suspect]
     Indication: PSORIASIS
  2. UNKNOWN CHOLESTEROL MEDICATION [Suspect]
     Indication: PRODUCT USED FOR UNKNOWN INDICATION
     Dates: end: 2011

REACTIONS (8)
  - Malignant melanoma [Not Recovered/Not Resolved]
  - Local swelling [Unknown]
  - Pruritus [Unknown]
  - Psoriasis [Unknown]
  - Psoriasis [Recovered/Resolved]
  - Pain [Recovered/Resolved]
  - Myositis [Recovered/Resolved]
  - Blood creatine phosphokinase increased [Recovered/Resolved]
